FAERS Safety Report 9828921 (Version 1)
Quarter: 2014Q1

REPORT INFORMATION
  Report Type: Report from Study
  Country: US (occurrence: US)
  Receive Date: 20140118
  Receipt Date: 20140118
  Transmission Date: 20141002
  Serious: Yes (Other)
  Sender: FDA-Public Use
  Company Number: US-ABBVIE-14P-163-1188190-00

PATIENT
  Age: 56 Year
  Sex: Female
  Weight: 89.89 kg

DRUGS (22)
  1. HUMIRA [Suspect]
     Indication: RHEUMATOID ARTHRITIS
     Route: 058
     Dates: start: 201207, end: 201209
  2. HUMIRA [Suspect]
     Indication: MIXED CONNECTIVE TISSUE DISEASE
  3. PREDNISONE [Concomitant]
     Indication: RHEUMATOID ARTHRITIS
     Dosage: 10-15MG QD
  4. PREDNISONE [Concomitant]
     Indication: MIXED CONNECTIVE TISSUE DISEASE
  5. PREDNISONE [Concomitant]
     Indication: RHEUMATOID ARTHRITIS
     Route: 050
  6. PREDNISONE [Concomitant]
     Indication: MIXED CONNECTIVE TISSUE DISEASE
  7. PLAQUENIL [Concomitant]
     Indication: RHEUMATOID ARTHRITIS
  8. PLAQUENIL [Concomitant]
     Indication: MIXED CONNECTIVE TISSUE DISEASE
  9. FOSAMAX [Concomitant]
     Indication: OSTEOPENIA
  10. ALBUTEROL [Concomitant]
     Indication: RESPIRATORY DISORDER
  11. SYMBICORT [Concomitant]
     Indication: RESPIRATORY DISORDER
  12. DIOVAN [Concomitant]
     Indication: HYPERTENSION
  13. BENTYL [Concomitant]
     Indication: IRRITABLE BOWEL SYNDROME
  14. LEVSIN [Concomitant]
     Indication: IRRITABLE BOWEL SYNDROME
     Dosage: PRN
  15. GABAPENTIN [Concomitant]
     Indication: NEUROPATHY PERIPHERAL
     Dosage: 1200 IN MORNING AND 1500 IN EVENING
  16. TOPIRAMATE [Concomitant]
     Indication: MIGRAINE
     Dosage: PRN
  17. IMITREX [Concomitant]
     Indication: MIGRAINE
     Dosage: PRN
  18. ASPIRIN [Concomitant]
     Indication: PROPHYLAXIS
  19. CALCIUM [Concomitant]
     Indication: MINERAL SUPPLEMENTATION
  20. VITAMIN D [Concomitant]
     Indication: VITAMIN D DEFICIENCY
  21. OMEPRAZOLE [Concomitant]
     Indication: GASTROOESOPHAGEAL REFLUX DISEASE
  22. MULTIVITAMIN [Concomitant]
     Indication: VITAMIN SUPPLEMENTATION

REACTIONS (2)
  - White blood cell count decreased [Recovering/Resolving]
  - Upper respiratory tract infection [Recovering/Resolving]
